FAERS Safety Report 9518120 (Version 1)
Quarter: 2013Q3

REPORT INFORMATION
  Report Type: Spontaneous
  Country: US (occurrence: US)
  Receive Date: 20130912
  Receipt Date: 20130912
  Transmission Date: 20140515
  Serious: No
  Sender: FDA-Public Use
  Company Number: US-B.I. PHARMACEUTICALS,INC./RIDGEFIELD-2013-BI-27082BP

PATIENT
  Age: 73 Year
  Sex: Female

DRUGS (11)
  1. PLAVIX [Concomitant]
     Indication: THROMBOSIS
     Route: 048
  2. COMBIVENT [Suspect]
     Indication: CHRONIC OBSTRUCTIVE PULMONARY DISEASE
     Dosage: DOSE PER APPLICATION: 20 MCG / 100 MCG; DAILY DOSE: 80 MCG/400 MCG
     Route: 055
     Dates: start: 201307
  3. ENALAPRIL [Concomitant]
     Indication: HYPERTENSION
     Route: 048
  4. LAMOTRIGINE [Concomitant]
     Route: 048
  5. LIPITOR [Concomitant]
     Indication: BLOOD CHOLESTEROL INCREASED
     Route: 048
     Dates: start: 2013
  6. LOPRESSOR [Concomitant]
     Indication: HYPERTENSION
     Route: 048
  7. MUSCLE RELAXANT [Concomitant]
     Indication: BACK PAIN
     Route: 048
  8. FLONASE [Concomitant]
     Indication: FACIAL BONES FRACTURE
     Dosage: FORMAULATION: NASAL SPRAY
     Route: 045
  9. ENTOCORT [Concomitant]
     Indication: DIARRHOEA
     Dates: start: 2012
  10. NEXIUM [Concomitant]
     Indication: GASTROOESOPHAGEAL REFLUX DISEASE
     Route: 048
  11. XANAX [Concomitant]
     Indication: ANXIETY
     Route: 048

REACTIONS (3)
  - Dysphonia [Not Recovered/Not Resolved]
  - Oropharyngeal pain [Not Recovered/Not Resolved]
  - Retching [Not Recovered/Not Resolved]
